FAERS Safety Report 9237400 (Version 5)
Quarter: 2013Q2

REPORT INFORMATION
  Report Type: Spontaneous
  Country: US (occurrence: US)
  Receive Date: 20130417
  Receipt Date: 20130528
  Transmission Date: 20140414
  Serious: Yes (Hospitalization)
  Sender: FDA-Public Use
  Company Number: US-GILEAD-2013-0073365

PATIENT
  Sex: Female

DRUGS (4)
  1. LETAIRIS [Suspect]
     Indication: PULMONARY ARTERIAL HYPERTENSION
     Dosage: 10 MG, QD
     Route: 048
     Dates: start: 20090427
  2. REMODULIN [Concomitant]
  3. WARFARIN [Concomitant]
  4. COUMADIN                           /00014802/ [Concomitant]

REACTIONS (4)
  - Pneumonia [Unknown]
  - Infusion site infection [Unknown]
  - Unevaluable event [Unknown]
  - Device related infection [Unknown]
